FAERS Safety Report 6979995-8 (Version None)
Quarter: 2010Q3

REPORT INFORMATION
  Report Type: 
  Country: None (occurrence: None)
  Receive Date: 20100914
  Receipt Date: 20100715
  Transmission Date: 20110219
  Serious: Yes (Other)
  Sender: FDA-Public Use
  Company Number: US-BAYER-201020518NA

PATIENT
  Age: 22 Year
  Sex: Female
  Weight: 82 kg

DRUGS (9)
  1. YAZ [Suspect]
     Indication: ORAL CONTRACEPTION
     Route: 048
     Dates: start: 20080601, end: 20080901
  2. AMPICILLIN SODIUM [Concomitant]
  3. ASPIRIN [Concomitant]
  4. ALBUTEROL [Concomitant]
  5. MOTRIN [Concomitant]
  6. ADVIL LIQUI-GELS [Concomitant]
  7. POTASSIUM [Concomitant]
  8. ONE A DAY WOMEN VITAMIN [Concomitant]
  9. ZANTAC [Concomitant]

REACTIONS (7)
  - ABDOMINAL PAIN [None]
  - ABDOMINAL PAIN UPPER [None]
  - BILIARY COLIC [None]
  - CHEST PAIN [None]
  - CHOLECYSTITIS CHRONIC [None]
  - CHOLELITHIASIS [None]
  - NAUSEA [None]
